FAERS Safety Report 17475390 (Version 1)
Quarter: 2020Q1

REPORT INFORMATION
  Report Type: Report from Study
  Country: IE (occurrence: IE)
  Receive Date: 20200228
  Receipt Date: 20200228
  Transmission Date: 20200409
  Serious: Yes (Other)
  Sender: FDA-Public Use
  Company Number: IE-JNJFOC-20190806669

PATIENT
  Sex: Male

DRUGS (11)
  1. STELARA [Suspect]
     Active Substance: USTEKINUMAB
     Route: 050
     Dates: start: 20190802
  2. CALCICHEW [Concomitant]
     Active Substance: CALCIUM CARBONATE
     Route: 050
  3. GERTAC [Concomitant]
     Active Substance: RANITIDINE HYDROCHLORIDE
     Route: 050
  4. ONDANSETRON [Concomitant]
     Active Substance: ONDANSETRON
     Route: 050
  5. STELARA [Suspect]
     Active Substance: USTEKINUMAB
     Route: 058
     Dates: start: 20190606
  6. CHOLESTAGEL [Concomitant]
     Active Substance: COLESEVELAM HYDROCHLORIDE
     Route: 050
  7. ZOLEPANT [Concomitant]
     Route: 050
  8. STELARA [Suspect]
     Active Substance: USTEKINUMAB
     Indication: CROHN^S DISEASE
     Route: 042
     Dates: start: 20190411
  9. PANTOPRAZOLE [Concomitant]
     Active Substance: PANTOPRAZOLE
     Route: 050
  10. DELTACORTRIL [Concomitant]
     Active Substance: PREDNISOLONE
     Dosage: REDUCING BY 5 MILLIGRAM EVERY
     Route: 050
  11. AMITRIPTYLINE [Concomitant]
     Active Substance: AMITRIPTYLINE
     Route: 050

REACTIONS (6)
  - Surgery [Unknown]
  - Hepatic function abnormal [Unknown]
  - Diarrhoea [Recovering/Resolving]
  - Inappropriate schedule of product administration [Recovered/Resolved]
  - Back pain [Not Recovered/Not Resolved]
  - Spinal osteoarthritis [Not Recovered/Not Resolved]

NARRATIVE: CASE EVENT DATE: 2019
